FAERS Safety Report 8557622-6 (Version None)
Quarter: 2012Q3

REPORT INFORMATION
  Report Type: 
  Country: None (occurrence: None)
  Receive Date: 20120801
  Receipt Date: 20120724
  Transmission Date: 20120928
  Serious: Yes (Death)
  Sender: FDA-Public Use
  Company Number: US-MYLANLABS-2010S1019874

PATIENT
  Age: 36 Year
  Sex: Female
  Weight: 106.14 kg

DRUGS (15)
  1. TOPIRAMATE [Concomitant]
  2. CYANOCOBALAMIN [Concomitant]
  3. BUSPIRONE HCL [Concomitant]
  4. FENTANYL-100 [Suspect]
     Indication: PAIN
  5. METHOCARBAMOL [Concomitant]
  6. HYDROCODONE [Concomitant]
     Dosage: 10MG/325MG; 1-2 EVERY SIX HOURS
  7. SERTRALINE HYDROCHLORIDE [Concomitant]
  8. ADVAIR [Concomitant]
     Route: 055
  9. MELOXICAM [Concomitant]
  10. HYDROXYZINE PAM [Concomitant]
  11. TRAZODONE HYDROCHLORIDE [Concomitant]
  12. DIAZEPAM [Concomitant]
  13. CYMBALTA [Concomitant]
     Dosage: SAMPLES
  14. THYROID TAB [Concomitant]
  15. GABAPENTIN [Concomitant]

REACTIONS (1)
  - TOXICITY TO VARIOUS AGENTS [None]
